FAERS Safety Report 20960994 (Version 1)
Quarter: 2022Q2

REPORT INFORMATION
  Report Type: Spontaneous
  Country: US (occurrence: US)
  Receive Date: 20220615
  Receipt Date: 20220615
  Transmission Date: 20220721
  Serious: Yes (Other)
  Sender: FDA-Public Use
  Company Number: US-GILEAD-2022-0584492

PATIENT
  Sex: Male

DRUGS (11)
  1. EPCLUSA [Suspect]
     Active Substance: SOFOSBUVIR\VELPATASVIR
     Indication: Chronic hepatitis C
     Dosage: 1 DOSAGE FORM, QD FOR 28 DAYS
     Route: 048
  2. RIBAVIRIN [Suspect]
     Active Substance: RIBAVIRIN
     Indication: Product used for unknown indication
     Route: 065
  3. LACTULOSE [Concomitant]
     Active Substance: LACTULOSE
  4. XIFAXAN [Concomitant]
     Active Substance: RIFAXIMIN
  5. TEMAZEPAM [Concomitant]
     Active Substance: TEMAZEPAM
  6. TAMSULOSIN HYDROCHLORIDE [Concomitant]
     Active Substance: TAMSULOSIN HYDROCHLORIDE
  7. SUCRALFATE [Concomitant]
     Active Substance: SUCRALFATE
  8. METOPROLOL TARTRATE [Concomitant]
     Active Substance: METOPROLOL TARTRATE
  9. METFORMIN HYDROCHLORIDE [Concomitant]
     Active Substance: METFORMIN HYDROCHLORIDE
  10. LISINOPRIL [Concomitant]
     Active Substance: LISINOPRIL
  11. ALENDRONATE SODIUM [Concomitant]
     Active Substance: ALENDRONATE SODIUM

REACTIONS (2)
  - Drug ineffective [Unknown]
  - Product use issue [Unknown]
